FAERS Safety Report 9363166 (Version 2)
Quarter: 2014Q4

REPORT INFORMATION
  Report Type: Report from Study
  Country: CA (occurrence: CA)
  Receive Date: 20130624
  Receipt Date: 20141211
  Transmission Date: 20150529
  Serious: Yes (Hospitalization)
  Sender: FDA-Public Use
  Company Number: CA-ROCHE-1240077

PATIENT
  Sex: Female
  Weight: 118 kg

DRUGS (14)
  1. SYNTHROID [Concomitant]
     Active Substance: LEVOTHYROXINE SODIUM
  2. TYLENOL [Concomitant]
     Active Substance: ACETAMINOPHEN
  3. RITUXAN [Suspect]
     Active Substance: RITUXIMAB
     Indication: RHEUMATOID ARTHRITIS
     Dosage: DAY1,15
     Route: 042
     Dates: start: 20130716, end: 20140721
  4. PREDNISONE. [Concomitant]
     Active Substance: PREDNISONE
  5. CITALOPRAM [Concomitant]
     Active Substance: CITALOPRAM HYDROBROMIDE
  6. DEXILANT [Concomitant]
     Active Substance: DEXLANSOPRAZOLE
  7. DIPHENHYDRAMINE HCL [Concomitant]
     Active Substance: DIPHENHYDRAMINE HYDROCHLORIDE
     Route: 048
     Dates: start: 20130716, end: 20140721
  8. ARAVA [Concomitant]
     Active Substance: LEFLUNOMIDE
  9. PLAQUENIL [Concomitant]
     Active Substance: HYDROXYCHLOROQUINE SULFATE
  10. ACETAMINOPHEN. [Concomitant]
     Active Substance: ACETAMINOPHEN
     Route: 048
     Dates: start: 20130716, end: 20140721
  11. METHYLPREDNISOLONE. [Concomitant]
     Active Substance: METHYLPREDNISOLONE
     Route: 042
     Dates: start: 20130716, end: 20140721
  12. ACTEMRA [Suspect]
     Active Substance: TOCILIZUMAB
     Route: 042
     Dates: start: 20130305
  13. ACTEMRA [Suspect]
     Active Substance: TOCILIZUMAB
     Indication: RHEUMATOID ARTHRITIS
     Route: 042
     Dates: start: 20130108, end: 20130527
  14. ACTEMRA [Suspect]
     Active Substance: TOCILIZUMAB
     Route: 042
     Dates: start: 20130205

REACTIONS (4)
  - Joint swelling [Not Recovered/Not Resolved]
  - Vestibular neuronitis [Unknown]
  - Gastric disorder [Unknown]
  - Pain in extremity [Not Recovered/Not Resolved]
